FAERS Safety Report 5593261-7 (Version None)
Quarter: 2008Q1

REPORT INFORMATION
  Report Type: 
  Country: None (occurrence: None)
  Receive Date: 20080116
  Receipt Date: 20080111
  Transmission Date: 20080703
  Serious: Yes (Other)
  Sender: FDA-Public Use
  Company Number: PHEH2008US00784

PATIENT
  Sex: Female
  Weight: 79.365 kg

DRUGS (3)
  1. TRILEPTAL [Suspect]
  2. HIV MEDS [Suspect]
  3. GEODON [Suspect]

REACTIONS (5)
  - BLOOD GLUCOSE INCREASED [None]
  - DIABETES MELLITUS [None]
  - FOOD CRAVING [None]
  - HUNGER [None]
  - POLLAKIURIA [None]
